FAERS Safety Report 25183564 (Version 1)
Quarter: 2025Q2

REPORT INFORMATION
  Report Type: Spontaneous
  Country: US (occurrence: US)
  Receive Date: 20250410
  Receipt Date: 20250410
  Transmission Date: 20250717
  Serious: No
  Sender: MERCK SHARP AND DOHME
  Company Number: US-009507513-2266206

PATIENT
  Age: 17 Month
  Sex: Female

DRUGS (8)
  1. VORINOSTAT [Suspect]
     Active Substance: VORINOSTAT
     Indication: Acute myeloid leukaemia
     Route: 048
  2. LUVELTAMAB TAZEVIBULIN [Concomitant]
     Active Substance: LUVELTAMAB TAZEVIBULIN
     Indication: Acute myeloid leukaemia
  3. AZACITIDINE [Concomitant]
     Active Substance: AZACITIDINE
     Indication: Acute myeloid leukaemia
  4. GLUCOSE OXIDASE [Concomitant]
     Active Substance: GLUCOSE OXIDASE
     Indication: Acute myeloid leukaemia
  5. VENETOCLAX [Concomitant]
     Active Substance: VENETOCLAX
     Indication: Acute myeloid leukaemia
  6. DECITABINE [Concomitant]
     Active Substance: DECITABINE
     Indication: Acute myeloid leukaemia
  7. FLUDARABINE [Concomitant]
     Active Substance: FLUDARABINE PHOSPHATE
     Indication: Acute myeloid leukaemia
  8. CYTARABINE [Concomitant]
     Active Substance: CYTARABINE
     Indication: Acute myeloid leukaemia

REACTIONS (1)
  - Product use in unapproved indication [Unknown]
